FAERS Safety Report 5026015-0 (Version None)
Quarter: 2006Q2

REPORT INFORMATION
  Report Type: 
  Country: None (occurrence: None)
  Receive Date: 20060614
  Receipt Date: 20060127
  Transmission Date: 20061013
  Serious: Yes (Hospitalization)
  Sender: FDA-Public Use
  Company Number: JP-ROCHE-434739

PATIENT
  Age: 6 Year
  Sex: Female
  Weight: 24 kg

DRUGS (2)
  1. TAMIFLU [Suspect]
     Dosage: DOSE FORM REPORTED AS DRY SYRUP.
     Route: 048
     Dates: start: 20060117, end: 20060117
  2. TAMIFLU [Suspect]
     Dosage: DOSE FORM REPORTED AS DRY SYRUP.
     Route: 048
     Dates: start: 20060118, end: 20060120

REACTIONS (3)
  - DECREASED APPETITE [None]
  - DRUG ERUPTION [None]
  - URTICARIA [None]
